FAERS Safety Report 4613265-8 (Version None)
Quarter: 2005Q1

REPORT INFORMATION
  Report Type: 
  Country: None (occurrence: None)
  Receive Date: 20050315
  Receipt Date: 20050302
  Transmission Date: 20050727
  Serious: Yes (Death)
  Sender: FDA-Public Use
  Company Number: A06200400297

PATIENT
  Age: 46 Year
  Sex: Female

DRUGS (3)
  1. PLAQUENIL [Suspect]
     Indication: ARTHRITIS
     Dosage: 200 MG OD, ORAL
     Route: 048
     Dates: start: 20040707, end: 20041007
  2. NEORAL [Suspect]
     Indication: ARTHRITIS
     Dosage: 100 MG OD, ORAL
     Route: 048
     Dates: start: 20040707, end: 20041007
  3. MEDROL [Suspect]
     Indication: ARTHRITIS
     Dosage: 8 MG OD ORAL
     Route: 048
     Dates: start: 20040707, end: 20041007

REACTIONS (21)
  - ANAEMIA [None]
  - DISSEMINATED INTRAVASCULAR COAGULATION [None]
  - ENTEROCOCCAL INFECTION [None]
  - GASTROINTESTINAL HAEMORRHAGE [None]
  - GENERAL PHYSICAL HEALTH DETERIORATION [None]
  - HAEMODIALYSIS [None]
  - HAEMODYNAMIC INSTABILITY [None]
  - HAEMOLYSIS [None]
  - HEPATITIS B [None]
  - HEPATITIS FULMINANT [None]
  - HEPATOCELLULAR DAMAGE [None]
  - HYPERBILIRUBINAEMIA [None]
  - LIVER TRANSPLANT [None]
  - MULTI-ORGAN FAILURE [None]
  - PLEURAL EFFUSION [None]
  - POST PROCEDURAL HAEMORRHAGE [None]
  - PULMONARY CONGESTION [None]
  - RENAL FAILURE [None]
  - RENAL HAEMORRHAGE [None]
  - RESPIRATORY FAILURE [None]
  - SEPTIC SHOCK [None]
